FAERS Safety Report 21528901 (Version 2)
Quarter: 2022Q4

REPORT INFORMATION
  Report Type: Spontaneous
  Country: US (occurrence: US)
  Receive Date: 20221031
  Receipt Date: 20221122
  Transmission Date: 20230112
  Serious: Yes (Other)
  Sender: FDA-Public Use
  Company Number: US-BIOVITRUM-2022US12426

PATIENT
  Sex: Female

DRUGS (1)
  1. SYNAGIS [Suspect]
     Active Substance: PALIVIZUMAB
     Indication: Premature baby
     Dosage: 55.2(DOSE UNITS NOT REPORTED)
     Dates: start: 20220706

REACTIONS (3)
  - Bronchiolitis [Unknown]
  - Influenza [Unknown]
  - Pyrexia [Unknown]
